FAERS Safety Report 21501358 (Version 1)
Quarter: 2022Q4

REPORT INFORMATION
  Report Type: Spontaneous
  Country: CO (occurrence: CO)
  Receive Date: 20221025
  Receipt Date: 20221025
  Transmission Date: 20230113
  Serious: Yes (Other)
  Sender: FDA-Public Use
  Company Number: CO-009507513-2210COL008210

PATIENT
  Age: 47 Year
  Sex: Male

DRUGS (2)
  1. ISENTRESS [Suspect]
     Active Substance: RALTEGRAVIR POTASSIUM
     Indication: HIV infection
     Dosage: 1200 MG, EVERY 24 HOURS (2 TABLETS X 600 MG)
     Route: 048
  2. ISENTRESS [Suspect]
     Active Substance: RALTEGRAVIR POTASSIUM
     Dosage: 400 MILLIGRAM, Q12H
     Route: 048

REACTIONS (2)
  - Diabetic metabolic decompensation [Unknown]
  - Hepatic failure [Unknown]
